FAERS Safety Report 9999638 (Version 1)
Quarter: 2014Q1

REPORT INFORMATION
  Report Type: Spontaneous
  Country: US (occurrence: None)
  Receive Date: 20140228
  Receipt Date: 20140228
  Transmission Date: 20141002
  Serious: Yes (Hospitalization)
  Sender: FDA-Public Use
  Company Number: PHEH2013US002056

PATIENT
  Age: 42 Year
  Sex: Female

DRUGS (1)
  1. NEORAL [Suspect]
     Indication: RENAL TRANSPLANT
     Route: 048

REACTIONS (3)
  - Diarrhoea [None]
  - Dehydration [None]
  - Abdominal discomfort [None]
